FAERS Safety Report 9472265 (Version 2)
Quarter: 2013Q3

REPORT INFORMATION
  Report Type: Spontaneous
  Country: US (occurrence: US)
  Receive Date: 20130823
  Receipt Date: 20130823
  Transmission Date: 20140515
  Serious: Yes (Disabling, Other)
  Sender: FDA-Public Use
  Company Number: US-UCBSA-093491

PATIENT
  Sex: Female

DRUGS (1)
  1. KEPPRA [Suspect]
     Indication: CONVULSION
     Dosage: DRUG STRENGTH:750 MG. NIGHTLY
     Dates: start: 2003

REACTIONS (5)
  - Macular degeneration [Unknown]
  - Arthropathy [Not Recovered/Not Resolved]
  - Contusion [Unknown]
  - Balance disorder [Recovered/Resolved]
  - Formication [Recovered/Resolved]
